FAERS Safety Report 16072472 (Version 1)
Quarter: 2019Q1

REPORT INFORMATION
  Report Type: Spontaneous
  Country: US (occurrence: US)
  Receive Date: 20190213
  Receipt Date: 20190213
  Transmission Date: 20190418
  Serious: No
  Sender: FDA-Public Use
  Company Number: None

PATIENT
  Sex: Female

DRUGS (1)
  1. COSENTYX [Suspect]
     Active Substance: SECUKINUMAB
     Indication: REITER^S SYNDROME
     Dosage: ?          OTHER FREQUENCY:EVERY 4 WKS ;?
     Route: 058
     Dates: start: 201810

REACTIONS (1)
  - Depression [None]
